FAERS Safety Report 8438145 (Version 2)
Quarter: 2013Q1

REPORT INFORMATION
  Report Type: Report from Study
  Country: FR (occurrence: FR)
  Receive Date: 20120302
  Receipt Date: 20130326
  Transmission Date: 20140127
  Serious: Yes (Hospitalization)
  Sender: FDA-Public Use
  Company Number: FR-MPIJNJ-2012-01378

PATIENT
  Sex: 0

DRUGS (9)
  1. VELCADE [Suspect]
     Indication: PLASMA CELL MYELOMA
     Dosage: 2.353 MG, CYCLIC
     Route: 065
     Dates: start: 20120119, end: 20120216
  2. REVLIMID [Suspect]
     Indication: PLASMA CELL MYELOMA
     Dosage: UNK
     Route: 065
     Dates: start: 20120119, end: 20120219
  3. DEXAMETHASONE [Suspect]
     Indication: PLASMA CELL MYELOMA
     Dosage: 20 MG, UNK
     Route: 065
     Dates: start: 20120119, end: 20120217
  4. INNOHEP                            /00889602/ [Concomitant]
     Indication: PROPHYLAXIS
     Dosage: UNK
     Dates: start: 20120119
  5. BACTRIM [Concomitant]
     Indication: PROPHYLAXIS
     Dosage: UNK
     Route: 048
     Dates: start: 20120119
  6. ZELITREX                           /01269701/ [Concomitant]
     Indication: PROPHYLAXIS
     Dosage: UNK
     Dates: start: 20120119
  7. CLAMOXYL                           /00249601/ [Concomitant]
     Indication: PROPHYLAXIS
     Dosage: 2 G, UNK
     Dates: start: 20120123
  8. DURAGESIC /00174601/ [Concomitant]
     Indication: PAIN
     Dosage: 25 UG, UNK
     Dates: start: 20120119
  9. OXYNORM [Concomitant]
     Indication: PAIN
     Dosage: 10 MG, UNK
     Route: 048
     Dates: start: 20120119

REACTIONS (1)
  - Lung disorder [Recovered/Resolved]
